FAERS Safety Report 14372885 (Version 8)
Quarter: 2019Q4

REPORT INFORMATION
  Report Type: Spontaneous
  Country: US (occurrence: US)
  Receive Date: 20180110
  Receipt Date: 20191227
  Transmission Date: 20200122
  Serious: Yes (Hospitalization, Other)
  Sender: FDA-Public Use
  Company Number: US-PFIZER INC-2018009829

PATIENT
  Age: 81 Year
  Sex: Female
  Weight: 53 kg

DRUGS (2)
  1. ATORVASTATIN CALCIUM. [Suspect]
     Active Substance: ATORVASTATIN CALCIUM
     Indication: BLOOD CHOLESTEROL ABNORMAL
  2. ATORVASTATIN CALCIUM. [Suspect]
     Active Substance: ATORVASTATIN CALCIUM
     Indication: MITRAL VALVE PROLAPSE
     Dosage: UNK, DAILY, (EVERY NIGHT)

REACTIONS (4)
  - Femur fracture [Unknown]
  - Vascular pain [Unknown]
  - Fall [Unknown]
  - Muscle spasms [Unknown]
